FAERS Safety Report 5900035-3 (Version None)
Quarter: 2008Q3

REPORT INFORMATION
  Report Type: 
  Country: None (occurrence: None)
  Receive Date: 20080925
  Receipt Date: 20080925
  Transmission Date: 20090109
  Serious: No
  Sender: FDA-Public Use
  Company Number: None

PATIENT
  Age: 40 Year
  Sex: Female
  Weight: 58.9676 kg

DRUGS (1)
  1. PREVIDENT NAFL VARNISH 5% SODIUM FLUORIDE COLGATE [Suspect]
     Indication: SENSITIVITY OF TEETH
     Dosage: PAINTED ONTO TEETH ONE TIME TOP
     Route: 061
     Dates: start: 20080513, end: 20080513

REACTIONS (2)
  - BACK PAIN [None]
  - PAIN IN EXTREMITY [None]
